FAERS Safety Report 11074466 (Version 1)
Quarter: 2015Q2

REPORT INFORMATION
  Report Type: Spontaneous
  Country: US (occurrence: None)
  Receive Date: 20150428
  Receipt Date: 20150428
  Transmission Date: 20150821
  Serious: Yes (Disabling)
  Sender: FDA-Public Use
  Company Number: None

PATIENT
  Age: 34 Year
  Sex: Female

DRUGS (3)
  1. NATURE MADE PRENATAL VITAMINS WITH DHA [Concomitant]
  2. CAMILA [Suspect]
     Active Substance: NORETHINDRONE
  3. LEVOTHYROXINE [Concomitant]
     Active Substance: LEVOTHYROXINE

REACTIONS (2)
  - Galactostasis [None]
  - Exposure during breast feeding [None]

NARRATIVE: CASE EVENT DATE: 20150427
